FAERS Safety Report 4809798-1 (Version None)
Quarter: 2005Q4

REPORT INFORMATION
  Report Type: 
  Country: None (occurrence: None)
  Receive Date: 20051026
  Receipt Date: 20050915
  Transmission Date: 20060501
  Serious: Yes (Other)
  Sender: FDA-Public Use
  Company Number: JP-BOEHRINGER INGELHEIM PHARMACEUTICALS, INC.-2005-BP-16379NB

PATIENT
  Age: 79 Year
  Sex: Female

DRUGS (4)
  1. SPIRIVA [Suspect]
     Indication: CHRONIC OBSTRUCTIVE PULMONARY DISEASE
     Route: 055
     Dates: start: 20050427, end: 20050525
  2. FLUTIDE [Concomitant]
     Route: 055
     Dates: start: 20050427
  3. KIPRES [Concomitant]
     Route: 048
     Dates: start: 20050427, end: 20050622
  4. HOKUNALIN [Concomitant]
     Route: 062
     Dates: start: 20050427

REACTIONS (1)
  - ERYTHEMA [None]
